FAERS Safety Report 11683877 (Version 1)
Quarter: 2015Q4

REPORT INFORMATION
  Report Type: Spontaneous
  Country: US (occurrence: US)
  Receive Date: 20151029
  Receipt Date: 20151029
  Transmission Date: 20160304
  Serious: No
  Sender: FDA-Public Use
  Company Number: US-BAYER-2015-451348

PATIENT
  Sex: Female

DRUGS (2)
  1. CLARITIN-D 24 HOUR [Suspect]
     Active Substance: LORATADINE\PSEUDOEPHEDRINE SULFATE
     Indication: UPPER-AIRWAY COUGH SYNDROME
  2. CLARITIN [Suspect]
     Active Substance: LORATADINE
     Indication: UPPER-AIRWAY COUGH SYNDROME
     Dosage: UNK

REACTIONS (3)
  - Off label use [Unknown]
  - Product use issue [Unknown]
  - Hypertension [Unknown]
